FAERS Safety Report 8564193-7 (Version None)
Quarter: 2012Q3

REPORT INFORMATION
  Report Type: 
  Country: None (occurrence: None)
  Receive Date: 20120803
  Receipt Date: 20120802
  Transmission Date: 20120928
  Serious: Yes (Other)
  Sender: FDA-Public Use
  Company Number: US-ABBOTT-12P-163-0959918-00

PATIENT
  Age: 62 Year
  Sex: Female

DRUGS (12)
  1. CLARITIN [Concomitant]
     Indication: HYPERSENSITIVITY
  2. GABAPENTIN [Concomitant]
     Indication: DEPRESSION
  3. GABAPENTIN [Concomitant]
     Indication: RESTLESS LEGS SYNDROME
     Dosage: DAILY
  4. PROZAC [Concomitant]
     Indication: DEPRESSION
  5. LAMOTRIGINE [Concomitant]
     Indication: BIPOLAR DISORDER
  6. DEPLIN [Concomitant]
     Indication: DEPRESSION
  7. HUMIRA [Suspect]
     Indication: CROHN'S DISEASE
     Dates: start: 20100101
  8. LOVASTATIN [Concomitant]
     Indication: BLOOD CHOLESTEROL INCREASED
     Dosage: 10 MG
  9. LITHIUM CARBONATE [Suspect]
     Indication: PRODUCT USED FOR UNKNOWN INDICATION
  10. OMEPRAZOLE [Concomitant]
     Indication: GASTROOESOPHAGEAL REFLUX DISEASE
  11. BENICAR HCT [Concomitant]
     Indication: HYPERTENSION
     Dosage: 1 DAILY, NOT SURE OF DOSE
  12. DEPLIN [Concomitant]
     Indication: BIPOLAR DISORDER

REACTIONS (9)
  - ARTHROPATHY [None]
  - WEIGHT DECREASED [None]
  - GAIT DISTURBANCE [None]
  - DYSPNOEA [None]
  - MUSCULOSKELETAL CHEST PAIN [None]
  - TOXICITY TO VARIOUS AGENTS [None]
  - COUGH [None]
  - FALL [None]
  - PNEUMONIA [None]
